FAERS Safety Report 24211212 (Version 1)
Quarter: 2024Q3

REPORT INFORMATION
  Report Type: Spontaneous
  Country: US (occurrence: US)
  Receive Date: 20240814
  Receipt Date: 20240814
  Transmission Date: 20241016
  Serious: Yes (Other)
  Sender: Alora Pharma
  Company Number: US-OSMOTICA PHARMACEUTICALS-2024ALO00395

PATIENT
  Age: 42 Year
  Sex: Male

DRUGS (27)
  1. HYDROMORPHONE HYDROCHLORIDE [Suspect]
     Active Substance: HYDROMORPHONE HYDROCHLORIDE
     Indication: Leg amputation
     Dosage: 1.3 MG INTRAOPERATIVE (0.5 MG BEFORE EXTUBATION)
     Route: 042
  2. HYDROMORPHONE HYDROCHLORIDE [Suspect]
     Active Substance: HYDROMORPHONE HYDROCHLORIDE
     Indication: Analgesic therapy
     Dosage: 2 DOSES OF 0.5 MG
     Route: 042
  3. HYDROMORPHONE HYDROCHLORIDE [Suspect]
     Active Substance: HYDROMORPHONE HYDROCHLORIDE
     Indication: Breakthrough pain
     Dosage: 0.2 MG WITH 6-MINUTE LOCK-OUT AND NO CONTINUOUS RATE (PATIENT-CONTROLLED ANALGESIA [PCA])
     Route: 042
  4. HYDROMORPHONE HYDROCHLORIDE [Suspect]
     Active Substance: HYDROMORPHONE HYDROCHLORIDE
     Indication: Postoperative analgesia
     Dosage: INCREASED TO 0.3 MG WITH A 10-MINUTE LOCK-OUT (PCA)
     Route: 042
  5. HYDROMORPHONE HYDROCHLORIDE [Suspect]
     Active Substance: HYDROMORPHONE HYDROCHLORIDE
     Dosage: 19.9 MG IN THE PREVIOUS 24 HOURS (POD 2) (PCA)
     Route: 042
  6. HYDROMORPHONE HYDROCHLORIDE [Suspect]
     Active Substance: HYDROMORPHONE HYDROCHLORIDE
     Dosage: DECREASED TO 8.2 MG IN 24 HOURS (POD 3) (PCA)
     Route: 042
  7. GABAPENTIN [Concomitant]
     Active Substance: GABAPENTIN
     Dosage: 300 MG (PREOPERATIVE)
  8. GABAPENTIN [Concomitant]
     Active Substance: GABAPENTIN
     Dosage: 200 MG, EVERY 8 HOURS (POSTOPERATIVE)
  9. MIDAZOLAM [Concomitant]
     Active Substance: MIDAZOLAM
     Dosage: 2 MG (PREOPERATIVE)
  10. LIDOCAINE [Concomitant]
     Active Substance: LIDOCAINE
     Dosage: 100 MG (INTRAOPERATIVE)
  11. FENTANYL [Concomitant]
     Active Substance: FENTANYL\FENTANYL CITRATE
     Dosage: 100 ?G (INTRAOPERATIVE)
  12. PROPOFOL [Concomitant]
     Active Substance: PROPOFOL
     Dosage: 250 MG (INTRAOPERATIVE)
  13. PROPOFOL [Concomitant]
     Active Substance: PROPOFOL
     Dosage: INFUSION
  14. SUCCINYLCHOLINE [Concomitant]
     Active Substance: SUCCINYLCHOLINE
     Dosage: 120 MG (INTRAOPERATIVE)
  15. CEFAZOLIN [Concomitant]
     Active Substance: CEFAZOLIN
     Dosage: 3 MG (INTRAOPERATIVE)
  16. CEFAZOLIN [Concomitant]
     Active Substance: CEFAZOLIN
     Dosage: 2 G EVERY 8 HOURS (POSTOPERATIVE)
  17. KETAMINE [Concomitant]
     Active Substance: KETAMINE
     Dosage: 5 ?G/KG/MIN (96.7 MG TOTAL) (INTRAOPERATIVE)
  18. SEVOFLURANE [Concomitant]
     Active Substance: SEVOFLURANE
     Dosage: MAINTENANCE (INTRAOPERATIVE)
  19. DEXMEDETOMIDINE [Concomitant]
     Active Substance: DEXMEDETOMIDINE
     Dosage: 28 ?G TOTAL AS BOLUSES (INTRAOPERATIVE)
  20. DEXAMETHASONE [Concomitant]
     Active Substance: DEXAMETHASONE
     Dosage: 8 MG (INTRAOPERATIVE)
  21. ONDANSETRON [Concomitant]
     Active Substance: ONDANSETRON
     Dosage: 4 MG (INTRAOPERATIVE)
  22. LACTATED RINGERS SOLUTION [Concomitant]
     Active Substance: CALCIUM CHLORIDE\POTASSIUM CHLORIDE\SODIUM CHLORIDE\SODIUM LACTATE
     Dosage: 1700 ML (INTRAOPERATIVE)
  23. STUDY PROTOCHOL [BUPIVACAINE, ROPIVACAINE, OR SHAM PLACEBO] [Concomitant]
     Dosage: SUBSEQUENT CONTINUOUS INFUSION (POSTOPERATIVE)
  24. ACETAMINOPHEN [Concomitant]
     Active Substance: ACETAMINOPHEN
     Dosage: 650 MG EVERY 6 HOURS AS NEEDED (POSTOPERATIVE)
  25. OXYCODONE [Concomitant]
     Active Substance: OXYCODONE
     Dosage: 5-10 MG EVERY 4 HOURS AS NEEDED (POSTOPERATIVE)
  26. TIZANIDINE [Concomitant]
     Active Substance: TIZANIDINE
     Dosage: 2 MG, AS NEEDED (POSTOPERATIVE)
  27. BUPIVACAINE [Concomitant]
     Active Substance: BUPIVACAINE
     Dosage: UNK, TRANSITIONED TO KNOWN BUPIVACAINE INFUSION (EVENING OF POD 1)

REACTIONS (2)
  - Strabismus [Recovered/Resolved]
  - Diplopia [Recovered/Resolved]
